FAERS Safety Report 6835320-4 (Version None)
Quarter: 2010Q3

REPORT INFORMATION
  Report Type: 
  Country: None (occurrence: None)
  Receive Date: 20100713
  Receipt Date: 20100710
  Transmission Date: 20110219
  Serious: Yes (Hospitalization, Other)
  Sender: FDA-Public Use
  Company Number: US-JNJFOC-20100502559

PATIENT
  Sex: Female

DRUGS (1)
  1. LEVAQUIN [Suspect]
     Indication: INFECTION
     Route: 048

REACTIONS (3)
  - MENISCUS LESION [None]
  - TENDON DISORDER [None]
  - TENDON RUPTURE [None]
